FAERS Safety Report 15551105 (Version 2)
Quarter: 2019Q2

REPORT INFORMATION
  Report Type: Spontaneous
  Country: FR (occurrence: FR)
  Receive Date: 20181025
  Receipt Date: 20190502
  Transmission Date: 20190711
  Serious: Yes (Other)
  Sender: FDA-Public Use
  Company Number: FR-PFIZER INC-2018422989

PATIENT
  Age: 34 Year
  Sex: Male
  Weight: 97 kg

DRUGS (3)
  1. LYRICA [Suspect]
     Active Substance: PREGABALIN
     Indication: ANKYLOSING SPONDYLITIS
     Dosage: 300 MG, AS NEEDED
     Route: 048
     Dates: start: 2014, end: 20180718
  2. PARACETAMOL [Suspect]
     Active Substance: ACETAMINOPHEN
     Indication: ANKYLOSING SPONDYLITIS
     Dosage: UNK
     Route: 048
     Dates: end: 20180718
  3. TRAMADOL. [Suspect]
     Active Substance: TRAMADOL
     Indication: ANKYLOSING SPONDYLITIS
     Dosage: 200 MG, 1X/DAY
     Route: 048
     Dates: end: 20190104

REACTIONS (2)
  - Hepatocellular injury [Recovered/Resolved]
  - Product use in unapproved indication [Recovered/Resolved]

NARRATIVE: CASE EVENT DATE: 2014
